FAERS Safety Report 10255922 (Version 1)
Quarter: 2014Q2

REPORT INFORMATION
  Report Type: Spontaneous
  Country: US (occurrence: US)
  Receive Date: 20140624
  Receipt Date: 20140624
  Transmission Date: 20141212
  Serious: Yes (Hospitalization)
  Sender: FDA-Public Use
  Company Number: US-GLAXOSMITHKLINE-A1077657A

PATIENT
  Sex: Female

DRUGS (1)
  1. LOVAZA [Suspect]
     Indication: PRODUCT USED FOR UNKNOWN INDICATION
     Route: 048
     Dates: start: 20140616

REACTIONS (6)
  - Investigation [Unknown]
  - Pruritus generalised [Unknown]
  - Headache [Unknown]
  - Pruritus [Unknown]
  - Insomnia [Unknown]
  - Therapeutic response changed [Unknown]
